FAERS Safety Report 8499409-9 (Version None)
Quarter: 2012Q3

REPORT INFORMATION
  Report Type: 
  Country: None (occurrence: None)
  Receive Date: 20120710
  Receipt Date: 20120703
  Transmission Date: 20120928
  Serious: Yes (Hospitalization, Other)
  Sender: FDA-Public Use
  Company Number: US-AMGEN-USASP2011047934

PATIENT
  Age: 68 Year
  Sex: Male
  Weight: 78.458 kg

DRUGS (11)
  1. SODIUM BICARBONATE [Concomitant]
     Dosage: 650 MG, UNK
     Route: 048
  2. RESTORIL                           /00393701/ [Concomitant]
     Dosage: 15 MG, UNK
     Route: 048
  3. OMEPRAZOLE [Concomitant]
     Dosage: 40 MG, UNK
     Route: 048
  4. OLUX [Concomitant]
     Dosage: 0.05 %, UNK
  5. OSCAL D                            /00944201/ [Concomitant]
     Dosage: UNK
     Route: 048
  6. DELTASONE                          /00016001/ [Concomitant]
     Dosage: 10 MG, UNK
     Route: 048
  7. VITAMIN D [Concomitant]
     Dosage: 50000 IU, UNK
     Route: 048
  8. VIAGRA [Concomitant]
     Dosage: 100 MG, UNK
     Route: 048
  9. ENBREL [Suspect]
     Indication: RHEUMATOID ARTHRITIS
     Dosage: 50 MG, QWK
     Route: 058
     Dates: start: 20051130, end: 20110630
  10. CARDIZEM [Concomitant]
     Dosage: 30 MG, UNK
     Route: 048
  11. TOPROL-XL [Concomitant]
     Dosage: 100 MG, UNK
     Route: 048

REACTIONS (3)
  - RENAL VASCULITIS [None]
  - GLOMERULONEPHRITIS RAPIDLY PROGRESSIVE [None]
  - ANTINEUTROPHIL CYTOPLASMIC ANTIBODY INCREASED [None]
